FAERS Safety Report 18925368 (Version 1)
Quarter: 2021Q1

REPORT INFORMATION
  Report Type: Spontaneous
  Country: JP (occurrence: JP)
  Receive Date: 20210223
  Receipt Date: 20210223
  Transmission Date: 20210420
  Serious: Yes (Hospitalization, Other)
  Sender: FDA-Public Use
  Company Number: JP-ALKEM LABORATORIES LIMITED-JP-ALKEM-2021-00810

PATIENT
  Age: 37 Year
  Sex: Male
  Weight: 64 kg

DRUGS (4)
  1. TRAZODONE [Suspect]
     Active Substance: TRAZODONE HYDROCHLORIDE
     Indication: SUICIDE ATTEMPT
     Dosage: 1100 MILLIGRAM
     Route: 065
  2. DULOXETINE HYDROCHLORIDE. [Suspect]
     Active Substance: DULOXETINE HYDROCHLORIDE
     Indication: SUICIDE ATTEMPT
     Dosage: 780 MILLIGRAM
     Route: 065
  3. QUETIAPINE FUMARATE. [Suspect]
     Active Substance: QUETIAPINE FUMARATE
     Indication: SUICIDE ATTEMPT
     Dosage: 850 MILLIGRAM
     Route: 065
  4. FLUNITRAZEPAM [Suspect]
     Active Substance: FLUNITRAZEPAM
     Indication: SUICIDE ATTEMPT
     Dosage: 18 MILLIGRAM
     Route: 065

REACTIONS (2)
  - Overdose [Unknown]
  - Suicide attempt [Recovered/Resolved]
